FAERS Safety Report 7912052-2 (Version None)
Quarter: 2011Q4

REPORT INFORMATION
  Report Type: 
  Country: None (occurrence: None)
  Receive Date: 20111114
  Receipt Date: 20111017
  Transmission Date: 20120403
  Serious: Yes (Other)
  Sender: FDA-Public Use
  Company Number: AU-EISAI INC-E3810-05010-SPO-AU

PATIENT
  Sex: Male
  Weight: 98 kg

DRUGS (1)
  1. RABEPRAZOLE SODIUM [Suspect]
     Route: 048

REACTIONS (3)
  - RENAL FAILURE [None]
  - DECREASED APPETITE [None]
  - WEIGHT DECREASED [None]
